FAERS Safety Report 6867385-8 (Version None)
Quarter: 2010Q3

REPORT INFORMATION
  Report Type: 
  Country: None (occurrence: None)
  Receive Date: 20100722
  Receipt Date: 20100713
  Transmission Date: 20110219
  Serious: Yes (Life-Threatening)
  Sender: FDA-Public Use
  Company Number: DE-JNJFOC-20100705176

PATIENT
  Sex: Male

DRUGS (5)
  1. ABCIXIMAB [Suspect]
     Indication: MYOCARDIAL INFARCTION
     Dosage: @11:36
     Route: 022
  2. ABCIXIMAB [Suspect]
     Dosage: @22:00, OVER 10 HOURS 22 MINUTES
     Route: 042
  3. ACETYLSALICYLIC ACID [Concomitant]
     Indication: MYOCARDIAL INFARCTION
  4. CLOPIDOGREL [Concomitant]
     Indication: MYOCARDIAL INFARCTION
  5. HEPARIN [Concomitant]
     Indication: MYOCARDIAL INFARCTION

REACTIONS (1)
  - AORTIC DISSECTION [None]
